FAERS Safety Report 4389820-0 (Version None)
Quarter: 2004Q2

REPORT INFORMATION
  Report Type: 
  Country: None (occurrence: None)
  Receive Date: 20040630
  Receipt Date: 20040614
  Transmission Date: 20050107
  Serious: Yes (Other)
  Sender: FDA-Public Use
  Company Number: A0514562A

PATIENT
  Age: 33 Year
  Sex: Female

DRUGS (2)
  1. NICORETTE [Suspect]
     Indication: EX-SMOKER
     Dosage: 4 MG TRANSBUCCAL
  2. NICORETTE [Suspect]
     Indication: EX-SMOKER
     Dosage: 2 MG TRANSBUCCAL

REACTIONS (2)
  - DRUG DEPENDENCE [None]
  - DRUG WITHDRAWAL SYNDROME [None]
